FAERS Safety Report 5317217-4 (Version None)
Quarter: 2007Q2

REPORT INFORMATION
  Report Type: 
  Country: None (occurrence: None)
  Receive Date: 20070504
  Receipt Date: 20070426
  Transmission Date: 20071010
  Serious: Yes (Other)
  Sender: FDA-Public Use
  Company Number: BR-PFIZER INC-2007030143

PATIENT
  Sex: Male

DRUGS (1)
  1. MINIDIAB [Suspect]
     Indication: DIABETES MELLITUS
     Route: 048

REACTIONS (2)
  - BLOOD GLUCOSE INCREASED [None]
  - EYE HAEMORRHAGE [None]
